FAERS Safety Report 6866927-6 (Version None)
Quarter: 2010Q2

REPORT INFORMATION
  Report Type: 
  Country: None (occurrence: None)
  Receive Date: 20100607
  Receipt Date: 20100329
  Transmission Date: 20101027
  Serious: No
  Sender: FDA-Public Use
  Company Number: 2010-00379

PATIENT
  Age: 62 Year
  Sex: Female
  Weight: 60.782 kg

DRUGS (7)
  1. ZICAM COLD REMEDY GEL SWABS [Suspect]
     Indication: NASOPHARYNGITIS
     Dosage: TID-QID
     Dates: start: 20081201
  2. ZICAM COLD REMEDY GEL SWABS [Suspect]
     Dosage: TID-QID
     Dates: start: 20081201
  3. SYNTHROID [Concomitant]
  4. METOPROLOL [Concomitant]
  5. CYCLOBENZAPRINE [Concomitant]
  6. CALCIUM [Concomitant]
  7. VITAMIN D [Concomitant]

REACTIONS (2)
  - AGEUSIA [None]
  - ANOSMIA [None]
